FAERS Safety Report 5964274-8 (Version None)
Quarter: 2008Q4

REPORT INFORMATION
  Report Type: 
  Country: None (occurrence: None)
  Receive Date: 20081124
  Receipt Date: 20081112
  Transmission Date: 20090506
  Serious: Yes (Life-Threatening, Other)
  Sender: FDA-Public Use
  Company Number: JP-PFIZER INC-2008095195

PATIENT
  Sex: Male

DRUGS (5)
  1. MYCOBUTIN [Suspect]
     Dosage: TEXT:2 CAPSULES/DAY
     Route: 048
     Dates: start: 20081017
  2. CLARITHROMYCIN [Suspect]
     Dosage: TEXT:2 TABLETS/DAY
     Route: 048
     Dates: start: 20070903
  3. CLARITHROMYCIN [Suspect]
     Dosage: TEXT:4 TABLETS/DAY
     Route: 048
     Dates: start: 20080919, end: 20081111
  4. ETHAMBUTOL HYDROCHLORIDE [Suspect]
     Dosage: TEXT:3 TABLETS/DAY
     Route: 048
     Dates: start: 20070903, end: 20081111
  5. AMOBAN [Concomitant]
     Route: 048
     Dates: start: 20080111, end: 20081111

REACTIONS (1)
  - INTERSTITIAL LUNG DISEASE [None]
